FAERS Safety Report 19966518 (Version 1)
Quarter: 2021Q4

REPORT INFORMATION
  Report Type: Spontaneous
  Country: US (occurrence: US)
  Receive Date: 20211018
  Receipt Date: 20211018
  Transmission Date: 20220303
  Serious: No
  Sender: FDA-Public Use
  Company Number: US-SA-SAC20211012000274

PATIENT
  Age: 27 Year
  Sex: Female

DRUGS (1)
  1. DUPIXENT [Suspect]
     Active Substance: DUPILUMAB
     Indication: Dermatitis atopic
     Dosage: 300 MG; QOW
     Route: 058

REACTIONS (7)
  - Gingival abscess [Unknown]
  - Gingival swelling [Unknown]
  - Gingival pain [Unknown]
  - Condition aggravated [Unknown]
  - Cold sweat [Unknown]
  - Vomiting [Unknown]
  - Pain [Unknown]
